FAERS Safety Report 7408268-4 (Version None)
Quarter: 2011Q2

REPORT INFORMATION
  Report Type: 
  Country: None (occurrence: None)
  Receive Date: 20110412
  Receipt Date: 20110225
  Transmission Date: 20111010
  Serious: Yes (Death, Other)
  Sender: FDA-Public Use
  Company Number: US-BAYER-200941018NA

PATIENT
  Sex: Male

DRUGS (15)
  1. IMDUR [Concomitant]
     Dosage: 30 MG, UNK
     Route: 048
  2. INSULIN [Concomitant]
     Dosage: 60 UNITS AM AND 40 UNITS PM
     Route: 058
  3. PREVACID [Concomitant]
     Dosage: 30 MG, UNK
     Route: 048
  4. TRAZODONE [Concomitant]
     Dosage: 50 MG, UNK
     Route: 048
  5. LORAZEPAM [Concomitant]
     Dosage: 0.5 MG, TID
     Route: 048
  6. MAGNESIUM OXIDE [Concomitant]
     Dosage: 400 MG, UNK
     Route: 048
  7. LISINOPRIL [Concomitant]
     Dosage: 60 MG, UNK
     Route: 048
  8. TOPROL-XL [Concomitant]
     Dosage: 50 MG, UNK
     Route: 048
  9. ZETIA [Concomitant]
     Dosage: 10 MG, UNK
     Route: 048
  10. DILTIAZEM [Concomitant]
     Dosage: 80 MG, UNK
  11. ZOLOFT [Concomitant]
     Dosage: 50 MG, UNK
     Route: 048
  12. VITAMIN B1 TAB [Concomitant]
     Dosage: 125 MG, UNK
     Route: 048
  13. TRASYLOL [Suspect]
     Indication: CARDIAC OPERATION
     Dosage: UNK
     Route: 042
     Dates: start: 20061109
  14. LIPITOR [Concomitant]
     Dosage: 40 MG, UNK
     Route: 048
  15. ASPIRIN [Concomitant]
     Dosage: 325 MG, UNK
     Route: 048

REACTIONS (10)
  - DEATH [None]
  - PAIN [None]
  - RENAL FAILURE [None]
  - CEREBROVASCULAR ACCIDENT [None]
  - FEAR [None]
  - UNEVALUABLE EVENT [None]
  - INJURY [None]
  - ANXIETY [None]
  - DEPRESSION [None]
  - ANHEDONIA [None]
